FAERS Safety Report 5509018-9 (Version None)
Quarter: 2007Q4

REPORT INFORMATION
  Report Type: 
  Country: None (occurrence: None)
  Receive Date: 20071107
  Receipt Date: 20071026
  Transmission Date: 20080405
  Serious: Yes (Hospitalization)
  Sender: FDA-Public Use
  Company Number: JP-BRISTOL-MYERS SQUIBB COMPANY-13929195

PATIENT
  Age: 55 Year
  Sex: Female
  Weight: 45 kg

DRUGS (6)
  1. ABATACEPT [Suspect]
     Indication: RHEUMATOID ARTHRITIS
     Route: 041
     Dates: start: 20070420, end: 20070914
  2. BLINDED: PLACEBO [Suspect]
     Indication: RHEUMATOID ARTHRITIS
     Route: 041
     Dates: start: 20070420, end: 20070914
  3. RHEUMATREX [Suspect]
     Indication: RHEUMATOID ARTHRITIS
     Dosage: INITIATED 12 WEEKS PRIOR TO THE FIRST DOSE OF BLINDED STUDY THERAPY AND WAS ONGOING.
     Route: 048
     Dates: end: 20071003
  4. PREDONINE [Concomitant]
     Indication: RHEUMATOID ARTHRITIS
     Dosage: 5MGSID ABOUT 56DAYS PRIOR TO ENROLLMENT-22JUN07;5MGSTD 06-JUN07-03OCT07
     Route: 048
     Dates: start: 20070623, end: 20071003
  5. VOLTAREN [Concomitant]
     Indication: RHEUMATOID ARTHRITIS
     Dosage: START: ABOUT 56 DAYS PRIOR TO ENROLLMENT.
     Route: 048
     Dates: end: 20071003
  6. MARZULENE-S [Concomitant]
     Indication: GASTRITIS PROPHYLAXIS
     Dosage: PRIOR TO OBTAINING INFORMED CONSENT
     Route: 048
     Dates: end: 20071003

REACTIONS (2)
  - APLASIA PURE RED CELL [None]
  - PARVOVIRUS INFECTION [None]
